FAERS Safety Report 25043305 (Version 1)
Quarter: 2025Q1

REPORT INFORMATION
  Report Type: Report from Study
  Country: US (occurrence: US)
  Receive Date: 20250305
  Receipt Date: 20250305
  Transmission Date: 20250409
  Serious: Yes (Other)
  Sender: ABBVIE
  Company Number: US-ABBVIE-6153976

PATIENT
  Age: 69 Year
  Sex: Female

DRUGS (1)
  1. RINVOQ [Suspect]
     Active Substance: UPADACITINIB
     Indication: Crohn^s disease
     Route: 048
     Dates: start: 20231027, end: 202502

REACTIONS (6)
  - Lower limb fracture [Unknown]
  - Fall [Recovered/Resolved]
  - Fall [Unknown]
  - Wrist fracture [Unknown]
  - Craniofacial fracture [Unknown]
  - Loose tooth [Unknown]

NARRATIVE: CASE EVENT DATE: 20250210
